FAERS Safety Report 6249142-9 (Version None)
Quarter: 2009Q2

REPORT INFORMATION
  Report Type: 
  Country: None (occurrence: None)
  Receive Date: 20090624
  Receipt Date: 20090624
  Transmission Date: 20091009
  Serious: No
  Sender: FDA-Public Use
  Company Number: None

PATIENT
  Age: 52 Year
  Sex: Female
  Weight: 54.4316 kg

DRUGS (1)
  1. HALFLYTELY [Suspect]
     Indication: COLONOSCOPY
     Dosage: 2 TABS THEN 8OZ EVERY 10 MIN UNTIL FINISHED
     Route: 048
     Dates: start: 20090623, end: 20090623

REACTIONS (2)
  - NAUSEA [None]
  - VOMITING [None]
